FAERS Safety Report 24627445 (Version 2)
Quarter: 2025Q3

REPORT INFORMATION
  Report Type: Spontaneous
  Country: CN (occurrence: None)
  Receive Date: 20241116
  Receipt Date: 20250803
  Transmission Date: 20251020
  Serious: Yes (Hospitalization, Other)
  Sender: ALEXION PHARMACEUTICALS
  Company Number: CN-ASTRAZENECA-202411CHN006457CN

PATIENT
  Age: 65 Year
  Sex: Female

DRUGS (1)
  1. DAPAGLIFLOZIN [Suspect]
     Active Substance: DAPAGLIFLOZIN
     Indication: Diabetes mellitus
     Dosage: 10 MICROGRAM, QD
     Dates: start: 20200101, end: 20241101

REACTIONS (4)
  - Arteriosclerosis coronary artery [Unknown]
  - Hypertension [Unknown]
  - Urinary tract infection [Unknown]
  - Diabetes mellitus [Unknown]
